FAERS Safety Report 24312156 (Version 1)
Quarter: 2024Q3

REPORT INFORMATION
  Report Type: Spontaneous
  Country: IT (occurrence: IT)
  Receive Date: 20240912
  Receipt Date: 20240912
  Transmission Date: 20241016
  Serious: Yes (Death, Other)
  Sender: ACCORD
  Company Number: IT-EMA-DD-20240827-7482645-064653

PATIENT
  Age: 57 Year
  Sex: Female

DRUGS (2)
  1. AZACITIDINE [Suspect]
     Active Substance: AZACITIDINE
     Indication: Chronic myelomonocytic leukaemia
     Dosage: 3 DEGREE CYCLE
  2. GILTERITINIB [Suspect]
     Active Substance: GILTERITINIB
     Indication: Chronic myelomonocytic leukaemia

REACTIONS (3)
  - Malignant neoplasm progression [Fatal]
  - Drug ineffective [Fatal]
  - Engraftment syndrome [Unknown]
